FAERS Safety Report 10471733 (Version 7)
Quarter: 2015Q3

REPORT INFORMATION
  Report Type: Report from Study
  Country: CA (occurrence: CA)
  Receive Date: 20140923
  Receipt Date: 20150827
  Transmission Date: 20151125
  Serious: Yes (Other)
  Sender: FDA-Public Use
  Company Number: CA-ROCHE-1415049

PATIENT
  Age: 55 Year
  Sex: Female
  Weight: 144 kg

DRUGS (13)
  1. METHOTREXATE [Concomitant]
     Active Substance: METHOTREXATE
     Route: 048
  2. ACTEMRA [Suspect]
     Active Substance: TOCILIZUMAB
     Route: 042
     Dates: start: 20140604
  3. ACTEMRA [Suspect]
     Active Substance: TOCILIZUMAB
     Route: 042
     Dates: start: 20140703
  4. ENBREL [Concomitant]
     Active Substance: ETANERCEPT
     Route: 058
  5. METHYLPREDNISOLONE. [Concomitant]
     Active Substance: METHYLPREDNISOLONE
     Route: 042
     Dates: start: 20150602
  6. ACTEMRA [Suspect]
     Active Substance: TOCILIZUMAB
     Route: 042
     Dates: start: 20140729
  7. ARAVA [Concomitant]
     Active Substance: LEFLUNOMIDE
     Route: 048
  8. TYLENOL [Concomitant]
     Active Substance: ACETAMINOPHEN
     Route: 048
     Dates: start: 20150602
  9. ACTEMRA [Suspect]
     Active Substance: TOCILIZUMAB
     Indication: RHEUMATOID ARTHRITIS
     Dosage: LAST DOSE ON 02/JUL/2014
     Route: 042
     Dates: start: 20140303, end: 20150421
  10. RITUXAN [Suspect]
     Active Substance: RITUXIMAB
     Indication: RHEUMATOID ARTHRITIS
     Route: 042
     Dates: start: 20150602
  11. SOLUCORT [Concomitant]
     Indication: PREMEDICATION
     Route: 042
     Dates: start: 20140604
  12. BENADRYL [Concomitant]
     Active Substance: DIPHENHYDRAMINE HYDROCHLORIDE
     Indication: PREMEDICATION
     Dosage: LAST DOSE RECEIVED ON 02/JUN/2015
     Route: 048
     Dates: start: 20140604
  13. ACTEMRA [Suspect]
     Active Substance: TOCILIZUMAB
     Route: 042
     Dates: start: 20141107

REACTIONS (10)
  - Anti-cyclic citrullinated peptide antibody positive [Unknown]
  - C-reactive protein decreased [Unknown]
  - Mean cell haemoglobin increased [Unknown]
  - Weight increased [Unknown]
  - Infusion related reaction [Unknown]
  - Alanine aminotransferase increased [Unknown]
  - Red blood cell sedimentation rate increased [Unknown]
  - Pancreatic neoplasm [Recovered/Resolved]
  - Glomerular filtration rate decreased [Unknown]
  - C-reactive protein increased [Unknown]

NARRATIVE: CASE EVENT DATE: 20140429
